FAERS Safety Report 24121568 (Version 1)
Quarter: 2024Q3

REPORT INFORMATION
  Report Type: Spontaneous
  Country: US (occurrence: None)
  Receive Date: 20240720
  Receipt Date: 20240720
  Transmission Date: 20241016
  Serious: Yes (Death, Life-Threatening, Hospitalization)
  Sender: Public
  Company Number: None

PATIENT
  Age: 88 Year
  Sex: Female

DRUGS (2)
  1. JARDIANCE [Suspect]
     Active Substance: EMPAGLIFLOZIN
     Indication: Atrial fibrillation
     Dosage: OTHER QUANTITY : 1 TABLET(S);?FREQUENCY : DAILY;?
     Route: 048
     Dates: start: 20221104, end: 20231015
  2. JARDIANCE [Suspect]
     Active Substance: EMPAGLIFLOZIN
     Indication: Cardiac failure

REACTIONS (12)
  - Renal failure [None]
  - Feeding disorder [None]
  - Starvation [None]
  - Hypotension [None]
  - Lethargy [None]
  - Drug ineffective [None]
  - Multiple organ dysfunction syndrome [None]
  - Cardiac failure [None]
  - Gangrene [None]
  - Nausea [None]
  - Weight decreased [None]
  - Abdominal distension [None]

NARRATIVE: CASE EVENT DATE: 20221108
